FAERS Safety Report 5028953-1 (Version None)
Quarter: 2006Q2

REPORT INFORMATION
  Report Type: 
  Country: None (occurrence: None)
  Receive Date: 20060619
  Receipt Date: 20060315
  Transmission Date: 20061013
  Serious: Yes (Disabling, Other)
  Sender: FDA-Public Use
  Company Number: PHFR2006GB01171

PATIENT
  Age: 43 Year
  Sex: Male

DRUGS (3)
  1. ZOMETA [Suspect]
     Indication: BREAST CANCER
     Dosage: 4 MG, QMO
     Route: 042
     Dates: start: 20040303
  2. CAPECITABINE [Concomitant]
     Indication: BREAST CANCER
     Dosage: UNK, UNK
     Route: 048
     Dates: start: 20050201
  3. ZOLADEX [Concomitant]
     Indication: BREAST CANCER
     Dosage: UNK, UNK
     Route: 058
     Dates: start: 20031001

REACTIONS (2)
  - HYPOAESTHESIA ORAL [None]
  - PAIN IN JAW [None]
